FAERS Safety Report 11202007 (Version 1)
Quarter: 2015Q2

REPORT INFORMATION
  Report Type: Spontaneous
  Country: US (occurrence: None)
  Receive Date: 20150617
  Receipt Date: 20150617
  Transmission Date: 20150821
  Serious: Yes (Life-Threatening, Hospitalization)
  Sender: FDA-Public Use
  Company Number: None

PATIENT
  Age: 36 Year
  Sex: Male

DRUGS (2)
  1. HALOPERIDOL. [Suspect]
     Active Substance: HALOPERIDOL
     Indication: SCHIZOAFFECTIVE DISORDER
     Route: 048
     Dates: start: 20141020, end: 20141023
  2. PRAZOSIN [Suspect]
     Active Substance: PRAZOSIN
     Route: 048
     Dates: start: 20141020, end: 20141021

REACTIONS (2)
  - Anaphylactic reaction [None]
  - Laryngospasm [None]

NARRATIVE: CASE EVENT DATE: 20141021
